FAERS Safety Report 13175649 (Version 6)
Quarter: 2018Q3

REPORT INFORMATION
  Report Type: Spontaneous
  Country: US (occurrence: US)
  Receive Date: 20170201
  Receipt Date: 20180712
  Transmission Date: 20181010
  Serious: Yes (Other)
  Sender: FDA-Public Use
  Company Number: US-BAYER-2017-019359

PATIENT
  Age: 34 Year
  Sex: Female
  Weight: 77.1 kg

DRUGS (2)
  1. MIRENA [Suspect]
     Active Substance: LEVONORGESTREL
     Indication: MENORRHAGIA
     Dosage: 20 MCG/24HR, CONT
     Route: 015
     Dates: start: 20161104
  2. MIRENA [Suspect]
     Active Substance: LEVONORGESTREL
     Indication: UTERINE HAEMORRHAGE

REACTIONS (4)
  - Abdominal pain lower [None]
  - Drug ineffective [None]
  - Device expulsion [None]
  - Pregnancy with contraceptive device [None]

NARRATIVE: CASE EVENT DATE: 201612
